FAERS Safety Report 21885326 (Version 1)
Quarter: 2023Q1

REPORT INFORMATION
  Report Type: Spontaneous
  Country: US (occurrence: None)
  Receive Date: 20230118
  Receipt Date: 20230118
  Transmission Date: 20230418
  Serious: Yes (unspecified)
  Sender: FDA-Public Use
  Company Number: None

PATIENT
  Age: 30 Year
  Sex: Female
  Weight: 117 kg

DRUGS (1)
  1. EMTRICITABINE\TENOFOVIR [Suspect]
     Active Substance: EMTRICITABINE\TENOFOVIR
     Dates: start: 20230117, end: 20230118

REACTIONS (11)
  - Paraesthesia [None]
  - Peripheral coldness [None]
  - Pain [None]
  - Pain in extremity [None]
  - Paraesthesia [None]
  - Muscle spasms [None]
  - Muscle spasms [None]
  - Insomnia [None]
  - Drug ineffective [None]
  - Vulvovaginal pain [None]
  - Anorectal disorder [None]

NARRATIVE: CASE EVENT DATE: 20230118
